FAERS Safety Report 15342593 (Version 10)
Quarter: 2020Q3

REPORT INFORMATION
  Report Type: Spontaneous
  Country: DE (occurrence: DE)
  Receive Date: 20180903
  Receipt Date: 20200722
  Transmission Date: 20201102
  Serious: Yes (Hospitalization)
  Sender: FDA-Public Use
  Company Number: DE-BIOGEN-2018BI00627703

PATIENT
  Age: 39 Year
  Sex: Female
  Weight: 59 kg

DRUGS (1)
  1. TYSABRI [Suspect]
     Active Substance: NATALIZUMAB
     Indication: MULTIPLE SCLEROSIS
     Route: 050
     Dates: start: 201612

REACTIONS (7)
  - Fatigue [Not Recovered/Not Resolved]
  - Lymphocytosis [Unknown]
  - Depression [Unknown]
  - Thrombocytosis [Unknown]
  - Immune thrombocytopenia [Recovered/Resolved]
  - Thrombocytopenia [Recovered/Resolved]
  - Hepatic cyst [Unknown]

NARRATIVE: CASE EVENT DATE: 20171101
